FAERS Safety Report 24739372 (Version 1)
Quarter: 2024Q4

REPORT INFORMATION
  Report Type: Spontaneous
  Country: CN (occurrence: CN)
  Receive Date: 20241216
  Receipt Date: 20241216
  Transmission Date: 20250115
  Serious: Yes (Life-Threatening)
  Sender: GE HEALTHCARE
  Company Number: CN-GE HEALTHCARE-2024CSU014264

PATIENT
  Age: 50 Year
  Sex: Female
  Weight: 90 kg

DRUGS (1)
  1. OMNISCAN [Suspect]
     Active Substance: GADODIAMIDE
     Indication: Diagnostic procedure
     Dosage: 10 ML, TOTAL
     Route: 042
     Dates: start: 20241130, end: 20241130

REACTIONS (5)
  - Shock [Recovered/Resolved]
  - Hypoaesthesia [Recovered/Resolved]
  - Dry mouth [Recovered/Resolved]
  - Vomiting [Recovered/Resolved]
  - Contrast media allergy [Recovered/Resolved]

NARRATIVE: CASE EVENT DATE: 20241130
